FAERS Safety Report 12378676 (Version 1)
Quarter: 2016Q2

REPORT INFORMATION
  Report Type: Report from Study
  Country: CA (occurrence: CA)
  Receive Date: 20160517
  Receipt Date: 20160517
  Transmission Date: 20160815
  Serious: Yes (Hospitalization)
  Sender: FDA-Public Use
  Company Number: CA-JNJFOC-20160511796

PATIENT
  Age: 48 Year
  Sex: Male
  Weight: 126 kg

DRUGS (1)
  1. REMICADE [Suspect]
     Active Substance: INFLIXIMAB
     Indication: ANKYLOSING SPONDYLITIS
     Route: 042
     Dates: start: 20110712

REACTIONS (3)
  - Back pain [Unknown]
  - Pneumonia [Unknown]
  - Delirium [Unknown]

NARRATIVE: CASE EVENT DATE: 20160425
